FAERS Safety Report 24040802 (Version 1)
Quarter: 2024Q3

REPORT INFORMATION
  Report Type: Spontaneous
  Country: US (occurrence: None)
  Receive Date: 20240701
  Receipt Date: 20240701
  Transmission Date: 20241017
  Serious: Yes (Hospitalization)
  Sender: Public
  Company Number: None

PATIENT
  Age: 74 Year
  Sex: Female
  Weight: 82.1 kg

DRUGS (1)
  1. MULTIHANCE [Suspect]
     Active Substance: GADOBENATE DIMEGLUMINE
     Indication: Magnetic resonance imaging
     Dates: start: 20240613

REACTIONS (5)
  - Hyperhidrosis [None]
  - Arrhythmia [None]
  - Seizure [None]
  - Oxygen saturation decreased [None]
  - Anaphylactic reaction [None]

NARRATIVE: CASE EVENT DATE: 20240613
